FAERS Safety Report 9056099 (Version 4)
Quarter: 2013Q3

REPORT INFORMATION
  Report Type: Spontaneous
  Country: BR (occurrence: BR)
  Receive Date: 20130205
  Receipt Date: 20130718
  Transmission Date: 20140515
  Serious: Yes (Hospitalization, Other)
  Sender: FDA-Public Use
  Company Number: BR-ABBOTT-13P-020-1042924-00

PATIENT
  Age: 17 Year
  Sex: Female
  Weight: 45.5 kg

DRUGS (9)
  1. DEPAKENE [Suspect]
     Indication: EPILEPSY
     Dosage: 1 TABLET IN THE MORNING AND 1 AT NIGHT
     Dates: start: 2005, end: 2005
  2. DEPAKOTE [Suspect]
     Indication: EPILEPSY
     Dosage: 1 TABLET IN THE MORNING AND 1 AT NIGHT
     Route: 048
     Dates: start: 2012
  3. DEPAKOTE [Suspect]
  4. TOPIRAMATE [Suspect]
     Indication: EPILEPSY
     Route: 048
     Dates: start: 201207
  5. COMBINED OF 7 MEDICATIONS [Suspect]
     Indication: PRODUCT USED FOR UNKNOWN INDICATION
  6. GEODAN [Concomitant]
     Indication: SCHIZOPHRENIA
     Dosage: 1 TABLET IN THE MORNING AND 1 AT NIGHT
     Route: 048
     Dates: start: 201207
  7. GEODAN [Concomitant]
     Indication: AGITATION
  8. RIVOTRIL [Concomitant]
     Indication: ANXIOLYTIC THERAPY
     Dosage: 1 TABLET IN THE MORNING AND 1 AT NIGHT
     Dates: start: 2007
  9. DEPO-PROVERA [Concomitant]
     Indication: MENSTRUAL CYCLE MANAGEMENT
     Dosage: ONE INJECTION
     Dates: start: 20130711, end: 20130711

REACTIONS (17)
  - Vomiting [Recovered/Resolved]
  - Dyskinesia [Recovered/Resolved]
  - Eye movement disorder [Recovered/Resolved]
  - Unevaluable event [Recovered/Resolved]
  - Hospitalisation [Unknown]
  - Epilepsy [Not Recovered/Not Resolved]
  - Aggression [Not Recovered/Not Resolved]
  - Stress [Unknown]
  - Convulsion [Recovered/Resolved]
  - Vomiting [Unknown]
  - Abnormal sensation in eye [Not Recovered/Not Resolved]
  - Aggression [Recovered/Resolved]
  - Weight decreased [Recovered/Resolved]
  - Aggression [Not Recovered/Not Resolved]
  - Nervousness [Not Recovered/Not Resolved]
  - Alopecia [Recovered/Resolved]
  - Dysstasia [Recovered/Resolved]
